FAERS Safety Report 4624620-4 (Version None)
Quarter: 2005Q1

REPORT INFORMATION
  Report Type: 
  Country: None (occurrence: None)
  Receive Date: 20050107
  Receipt Date: 20041201
  Transmission Date: 20050727
  Serious: No
  Sender: FDA-Public Use
  Company Number: 235829K04USA

PATIENT
  Age: 32 Year
  Sex: Female

DRUGS (1)
  1. REBIF [Suspect]
     Indication: MULTIPLE SCLEROSIS
     Dosage: 44 MCG 3 IN 1 WEEKS, SUBCUTANEOUS
     Route: 058
     Dates: start: 20040811, end: 20041129

REACTIONS (2)
  - HYPOAESTHESIA [None]
  - PARAESTHESIA [None]
